FAERS Safety Report 10103566 (Version 2)
Quarter: 2014Q2

REPORT INFORMATION
  Report Type: Other
  Country: US (occurrence: US)
  Receive Date: 20140424
  Receipt Date: 20140625
  Transmission Date: 20141212
  Serious: Yes (Death, Other)
  Sender: FDA-Public Use
  Company Number: US-GSKPPD-2014GSK000092

PATIENT
  Age: 63 Year
  Sex: Female

DRUGS (4)
  1. AVANDIA [Suspect]
     Indication: DIABETES MELLITUS
     Route: 048
     Dates: start: 20011022, end: 20020808
  2. ENALAPRIL [Concomitant]
     Route: 048
  3. METOPROLOL [Concomitant]
     Route: 048
  4. FUROSEMIDE [Concomitant]
     Route: 048

REACTIONS (2)
  - Myocardial infarction [Not Recovered/Not Resolved]
  - Cardiac arrest [Fatal]
